FAERS Safety Report 23087845 (Version 1)
Quarter: 2023Q4

REPORT INFORMATION
  Report Type: Spontaneous
  Country: US (occurrence: US)
  Receive Date: 20231020
  Receipt Date: 20231020
  Transmission Date: 20240109
  Serious: Yes (Death, Other)
  Sender: FDA-Public Use
  Company Number: US-CADILA HEALTHCARE LIMITED-US-ZYDUS-098984

PATIENT

DRUGS (3)
  1. COLCHICINE [Suspect]
     Active Substance: COLCHICINE
     Indication: Suicide attempt
     Dosage: 0.6 MILLIGRAM, 40 TABLETS (24MG; 0.33 MG/KG).
     Route: 065
  2. NITROGLYCERIN [Suspect]
     Active Substance: NITROGLYCERIN
     Indication: Pulmonary oedema
     Dosage: UNK
     Route: 065
  3. FUROSEMIDE [Concomitant]
     Active Substance: FUROSEMIDE
     Indication: Pulmonary oedema
     Dosage: UNK
     Route: 065

REACTIONS (8)
  - Acute respiratory distress syndrome [Fatal]
  - Lactic acidosis [Fatal]
  - Acute kidney injury [Fatal]
  - Shock [Fatal]
  - Multiple organ dysfunction syndrome [Fatal]
  - Toxicity to various agents [Fatal]
  - Overdose [Fatal]
  - Drug ineffective [Unknown]
